FAERS Safety Report 13724572 (Version 1)
Quarter: 2017Q3

REPORT INFORMATION
  Report Type: Spontaneous
  Country: FR (occurrence: FR)
  Receive Date: 20170706
  Receipt Date: 20170706
  Transmission Date: 20171127
  Serious: Yes (Other)
  Sender: FDA-Public Use
  Company Number: FR-SA-2017SA119285

PATIENT
  Sex: Female

DRUGS (2)
  1. RIMACTAN [Suspect]
     Active Substance: RIFAMPIN
     Route: 048
     Dates: start: 20170210, end: 20170423
  2. RIFINAH [Suspect]
     Active Substance: ISONIAZID\RIFAMPIN
     Route: 048
     Dates: start: 20170210, end: 20170423

REACTIONS (3)
  - Headache [Recovered/Resolved]
  - Subdural haematoma [Recovered/Resolved]
  - Rash macular [Recovered/Resolved]

NARRATIVE: CASE EVENT DATE: 20170423
